FAERS Safety Report 5144265-X (Version None)
Quarter: 2006Q4

REPORT INFORMATION
  Report Type: 
  Country: None (occurrence: None)
  Receive Date: 20061102
  Receipt Date: 20061102
  Transmission Date: 20070319
  Serious: Yes (Other)
  Sender: FDA-Public Use
  Company Number: None

PATIENT
  Age: 86 Year
  Sex: Female

DRUGS (8)
  1. BONIVA [Suspect]
     Indication: OSTEOPOROSIS
     Dosage: 1 TABLET ONCE MONTHLY PO
     Route: 048
     Dates: start: 20060828, end: 20060928
  2. ASPIRIN [Suspect]
     Indication: CARDIOVASCULAR EVENT PROPHYLAXIS
     Dosage: 1 TABLET DAILY PO A FEW YEARS
     Route: 048
  3. AMIODARONE HCL [Concomitant]
  4. ATENOLOL [Concomitant]
  5. MAXZIDE [Concomitant]
  6. LIPITOR [Concomitant]
  7. CHLORDIAZEPOXIDE [Concomitant]
  8. ASCORBIC ACID [Concomitant]

REACTIONS (1)
  - ANGIONEUROTIC OEDEMA [None]
